FAERS Safety Report 9834509 (Version 1)
Quarter: 2014Q1

REPORT INFORMATION
  Report Type: Report from Study
  Country: RU (occurrence: RU)
  Receive Date: 20140122
  Receipt Date: 20140122
  Transmission Date: 20141002
  Serious: Yes (Hospitalization)
  Sender: FDA-Public Use
  Company Number: RU-SA-2014SA005048

PATIENT
  Age: 56 Year
  Sex: Male

DRUGS (4)
  1. PLAVIX [Suspect]
     Indication: THROMBOSIS PROPHYLAXIS
     Route: 048
     Dates: start: 2012
  2. THROMBO ASS [Concomitant]
     Indication: ARTERIAL THROMBOSIS
     Route: 048
  3. CONCOR [Concomitant]
     Indication: HYPERTENSION
     Route: 048
     Dates: start: 2012
  4. PRESTARIUM [Concomitant]

REACTIONS (2)
  - Chest pain [Unknown]
  - Dyspnoea [Unknown]
